FAERS Safety Report 25836538 (Version 1)
Quarter: 2025Q3

REPORT INFORMATION
  Report Type: Spontaneous
  Country: EU (occurrence: EU)
  Receive Date: 20250923
  Receipt Date: 20250923
  Transmission Date: 20251021
  Serious: Yes (Other)
  Sender: ROCHE
  Company Number: EU-QIL-007208

PATIENT
  Age: 58 Year
  Sex: Female

DRUGS (2)
  1. RANIBIZUMAB [Suspect]
     Active Substance: RANIBIZUMAB
     Indication: Neovascular age-related macular degeneration
     Route: 050
  2. RANIBIZUMAB [Suspect]
     Active Substance: RANIBIZUMAB
     Indication: Retinal degeneration
     Route: 050

REACTIONS (5)
  - Macular degeneration [Unknown]
  - Choroidal neovascularisation [Recovering/Resolving]
  - Off label use [Unknown]
  - Visual acuity reduced [Recovering/Resolving]
  - Drug resistance [Unknown]
